FAERS Safety Report 9537433 (Version 1)
Quarter: 2013Q3

REPORT INFORMATION
  Report Type: Spontaneous
  Country: US (occurrence: US)
  Receive Date: 20130919
  Receipt Date: 20130919
  Transmission Date: 20140515
  Serious: Yes (Other)
  Sender: FDA-Public Use
  Company Number: US-GLAXOSMITHKLINE-A1038315A

PATIENT
  Age: 55 Year
  Sex: Female
  Weight: 76.8 kg

DRUGS (5)
  1. VOTRIENT [Suspect]
     Indication: BREAST FIBROMA
     Dosage: 2TAB PER DAY
     Route: 048
     Dates: start: 201207, end: 20130820
  2. TRAMADOL [Concomitant]
  3. PREVACID [Concomitant]
  4. MELOXICAM [Concomitant]
  5. ROPINIROLE [Concomitant]

REACTIONS (13)
  - Cognitive disorder [Recovering/Resolving]
  - Confusional state [Recovering/Resolving]
  - Thinking abnormal [Recovering/Resolving]
  - Memory impairment [Recovering/Resolving]
  - Fatigue [Recovering/Resolving]
  - Amnesia [Recovering/Resolving]
  - Headache [Recovering/Resolving]
  - Visual impairment [Recovering/Resolving]
  - Asthenia [Recovering/Resolving]
  - Gait disturbance [Recovering/Resolving]
  - Aphasia [Recovering/Resolving]
  - Reading disorder [Recovering/Resolving]
  - Anxiety [Recovering/Resolving]
